FAERS Safety Report 8096894-1 (Version None)
Quarter: 2012Q1

REPORT INFORMATION
  Report Type: 
  Country: None (occurrence: None)
  Receive Date: 20120129
  Receipt Date: 20111104
  Transmission Date: 20120608
  Serious: No
  Sender: FDA-Public Use
  Company Number: US-ABBOTT-11P-163-0872167-00

PATIENT
  Sex: Female
  Weight: 61.29 kg

DRUGS (6)
  1. COLESTIPOL HYDROCHLORIDE [Suspect]
     Indication: CROHN'S DISEASE
     Dates: end: 20111001
  2. IRON [Concomitant]
     Indication: ANAEMIA
  3. HUMIRA [Suspect]
     Indication: CROHN'S DISEASE
     Dates: start: 20111015, end: 20111015
  4. FOLIC ACID [Concomitant]
     Indication: CROHN'S DISEASE
  5. VITAMIN D [Concomitant]
     Indication: VITAMIN SUPPLEMENTATION
  6. HUMIRA [Suspect]
     Dates: start: 20111030, end: 20111030

REACTIONS (1)
  - WEIGHT INCREASED [None]
